FAERS Safety Report 13894938 (Version 1)
Quarter: 2017Q3

REPORT INFORMATION
  Report Type: Spontaneous
  Country: US (occurrence: US)
  Receive Date: 20170817
  Receipt Date: 20170817
  Transmission Date: 20171127
  Serious: Yes (Life-Threatening, Other)
  Sender: FDA-Public Use
  Company Number: None

PATIENT
  Age: 63 Year
  Sex: Male
  Weight: 65.7 kg

DRUGS (3)
  1. ASPIRIN. [Concomitant]
     Active Substance: ASPIRIN
  2. LANTUS SOLOSTAR [Suspect]
     Active Substance: INSULIN GLARGINE
     Indication: DRUG THERAPY
     Dosage: QUANTITY:6 UNITS;?
     Route: 058
     Dates: start: 20120415, end: 20150514
  3. HUMALOG [Concomitant]
     Active Substance: INSULIN LISPRO

REACTIONS (4)
  - Loss of consciousness [None]
  - Pruritus [None]
  - Ligament sprain [None]
  - Dizziness postural [None]

NARRATIVE: CASE EVENT DATE: 20150614
